FAERS Safety Report 17338933 (Version 8)
Quarter: 2020Q2

REPORT INFORMATION
  Report Type: Report from Study
  Country: US (occurrence: US)
  Receive Date: 20200129
  Receipt Date: 20200603
  Transmission Date: 20200713
  Serious: Yes (Other)
  Sender: FDA-Public Use
  Company Number: NVSC2020US015712

PATIENT
  Age: 72 Year
  Sex: Female

DRUGS (3)
  1. BEOVU [Suspect]
     Active Substance: BROLUCIZUMAB-DBLL
     Indication: NEOVASCULAR AGE-RELATED MACULAR DEGENERATION
     Dosage: UNK
     Route: 047
     Dates: start: 20191031
  2. BEOVU [Suspect]
     Active Substance: BROLUCIZUMAB-DBLL
     Dosage: UNK
     Route: 047
     Dates: start: 20191031
  3. BEOVU [Suspect]
     Active Substance: BROLUCIZUMAB-DBLL
     Dosage: UNK
     Route: 047
     Dates: start: 20191101

REACTIONS (6)
  - Visual impairment [Unknown]
  - Ocular discomfort [Unknown]
  - Vision blurred [Recovering/Resolving]
  - Hypoaesthesia eye [Unknown]
  - Memory impairment [Unknown]
  - Eye irritation [Unknown]

NARRATIVE: CASE EVENT DATE: 20200110
